FAERS Safety Report 9791868 (Version 1)
Quarter: 2014Q1

REPORT INFORMATION
  Report Type: Spontaneous
  Country: US (occurrence: US)
  Receive Date: 20140102
  Receipt Date: 20140102
  Transmission Date: 20141002
  Serious: No
  Sender: FDA-Public Use
  Company Number: US-PFIZER INC-2013371600

PATIENT
  Age: 74 Year
  Sex: Female

DRUGS (1)
  1. SUTENT [Suspect]
     Indication: CARCINOID TUMOUR
     Dosage: 12.5 MG 3 TABS DAILY
     Dates: start: 20120708

REACTIONS (4)
  - Disease progression [Unknown]
  - Carcinoid tumour [Unknown]
  - Hypertension [Unknown]
  - Off label use [Unknown]
